FAERS Safety Report 6105576-4 (Version None)
Quarter: 2009Q1

REPORT INFORMATION
  Report Type: 
  Country: None (occurrence: None)
  Receive Date: 20090304
  Receipt Date: 20090304
  Transmission Date: 20090719
  Serious: Yes (Other)
  Sender: FDA-Public Use
  Company Number: None

PATIENT
  Age: 17 Year
  Sex: Female
  Weight: 49.8957 kg

DRUGS (1)
  1. VALTREX [Suspect]
     Indication: HERPES SIMPLEX

REACTIONS (3)
  - AGGRESSION [None]
  - ANGER [None]
  - MEMORY IMPAIRMENT [None]
